FAERS Safety Report 5644521-2 (Version None)
Quarter: 2008Q1

REPORT INFORMATION
  Report Type: 
  Country: None (occurrence: None)
  Receive Date: 20080229
  Receipt Date: 20070213
  Transmission Date: 20080703
  Serious: No
  Sender: FDA-Public Use
  Company Number: A0639506A

PATIENT
  Sex: Male

DRUGS (1)
  1. VALTREX [Suspect]
     Indication: RASH
     Dosage: 1000MG THREE TIMES PER DAY
     Route: 065

REACTIONS (1)
  - RASH [None]
